FAERS Safety Report 7417814-6 (Version None)
Quarter: 2011Q2

REPORT INFORMATION
  Report Type: 
  Country: None (occurrence: None)
  Receive Date: 20110415
  Receipt Date: 20110404
  Transmission Date: 20111010
  Serious: Yes (Other)
  Sender: FDA-Public Use
  Company Number: KZ-ELI_LILLY_AND_COMPANY-KZ201104001240

PATIENT
  Age: 21 Year
  Sex: Female

DRUGS (2)
  1. ZYPREXA [Suspect]
     Dosage: UNK UNK, DAILY (1/D)
     Route: 042
  2. SENORM [Concomitant]
     Dosage: UNK
     Route: 042

REACTIONS (5)
  - PNEUMONIA [None]
  - OVERDOSE [None]
  - BLOOD ALBUMIN DECREASED [None]
  - DECUBITUS ULCER [None]
  - INCORRECT ROUTE OF DRUG ADMINISTRATION [None]
